FAERS Safety Report 5203582-5 (Version None)
Quarter: 2007Q1

REPORT INFORMATION
  Report Type: 
  Country: None (occurrence: None)
  Receive Date: 20070105
  Receipt Date: 20061220
  Transmission Date: 20070707
  Serious: Yes (Hospitalization)
  Sender: FDA-Public Use
  Company Number: DAV-AE-ATE-06-001

PATIENT
  Age: 54 Year
  Sex: Female

DRUGS (5)
  1. ATENOLOL [Suspect]
     Indication: HYPERTENSION
     Dosage: 100 MG,
  2. DILTIAZEM HCL [Suspect]
     Indication: HYPERTENSION
     Dosage: 300 MG,
  3. IRBESARTAN [Concomitant]
  4. METFORMIN [Concomitant]
  5. INSULIN [Concomitant]

REACTIONS (11)
  - ASTHENIA [None]
  - BLOOD PRESSURE DECREASED [None]
  - CONDITION AGGRAVATED [None]
  - DIABETES MELLITUS [None]
  - ELECTROCARDIOGRAM QT CORRECTED INTERVAL SHORTENED [None]
  - ELECTROCARDIOGRAM T WAVE PEAKED [None]
  - HEART RATE DECREASED [None]
  - HYPERKALAEMIA [None]
  - NODAL ARRHYTHMIA [None]
  - RENAL FAILURE [None]
  - SINUS ARREST [None]
